FAERS Safety Report 18482695 (Version 1)
Quarter: 2020Q4

REPORT INFORMATION
  Report Type: Spontaneous
  Country: US (occurrence: US)
  Receive Date: 20201109
  Receipt Date: 20201109
  Transmission Date: 20210114
  Serious: Yes (Other)
  Sender: FDA-Public Use
  Company Number: US-PURDUE-USA-2020-0175777

PATIENT
  Sex: Male

DRUGS (1)
  1. DILAUDID [Suspect]
     Active Substance: HYDROMORPHONE HYDROCHLORIDE
     Indication: PRODUCT USED FOR UNKNOWN INDICATION
     Dosage: UNK
     Route: 064

REACTIONS (17)
  - Withdrawal syndrome [Unknown]
  - Drug dependence [Unknown]
  - Developmental delay [Unknown]
  - Attention deficit hyperactivity disorder [Unknown]
  - Pain [Unknown]
  - Cardiac disorder [Unknown]
  - Headache [Unknown]
  - Memory impairment [Unknown]
  - Emotional distress [Unknown]
  - Foetal exposure during pregnancy [Unknown]
  - Learning disability [Unknown]
  - Congenital anomaly [Unknown]
  - Mental disorder [Unknown]
  - Speech disorder [Unknown]
  - Visual impairment [Unknown]
  - Drug withdrawal syndrome neonatal [Unknown]
  - Spina bifida [Unknown]
